FAERS Safety Report 23692494 (Version 2)
Quarter: 2024Q2

REPORT INFORMATION
  Report Type: Spontaneous
  Country: IT (occurrence: IT)
  Receive Date: 20240401
  Receipt Date: 20240419
  Transmission Date: 20240716
  Serious: Yes (Other)
  Sender: FDA-Public Use
  Company Number: IT-SA-2017SA042974

PATIENT
  Sex: Male

DRUGS (6)
  1. LETROZOLE [Suspect]
     Active Substance: LETROZOLE
     Indication: Invasive ductal breast carcinoma
     Dosage: 2.5 MG,QD
     Route: 065
     Dates: start: 200107, end: 200201
  2. EXEMESTANE [Suspect]
     Active Substance: EXEMESTANE
     Indication: Invasive ductal breast carcinoma
     Dosage: 25 MG,QD
     Route: 065
     Dates: start: 200001, end: 200101
  3. DOCETAXEL [Concomitant]
     Active Substance: DOCETAXEL\DOCETAXEL ANHYDROUS
     Indication: Metastases to lung
     Dosage: 80 MG/MQ DAY 1
     Route: 065
     Dates: start: 20010201, end: 20010601
  4. EPIRUBICIN [Concomitant]
     Active Substance: EPIRUBICIN
     Indication: Invasive ductal breast carcinoma
     Dosage: 75 MG/MQ
     Route: 065
     Dates: start: 20010201, end: 20010601
  5. MEGESTROL [Concomitant]
     Active Substance: MEGESTROL
     Indication: Invasive ductal breast carcinoma
     Dosage: 160 MG,QD
     Route: 042
     Dates: start: 199704, end: 200001
  6. MEGESTROL [Concomitant]
     Active Substance: MEGESTROL
     Dosage: UNK UNK,UNK
     Route: 042
     Dates: start: 200212, end: 200710

REACTIONS (1)
  - Off label use [Unknown]
